FAERS Safety Report 24290574 (Version 1)
Quarter: 2024Q3

REPORT INFORMATION
  Report Type: Spontaneous
  Country: CN (occurrence: CN)
  Receive Date: 20240906
  Receipt Date: 20240906
  Transmission Date: 20241016
  Serious: Yes (Life-Threatening, Other)
  Sender: RANBAXY
  Company Number: CN-SUN PHARMACEUTICAL INDUSTRIES LTD-2024R1-466400

PATIENT
  Age: 77 Year
  Sex: Female

DRUGS (5)
  1. DECITABINE [Suspect]
     Active Substance: DECITABINE
     Indication: Acute myeloid leukaemia
     Dosage: UNK
     Route: 065
     Dates: start: 20220515
  2. OLAPARIB [Suspect]
     Active Substance: OLAPARIB
     Indication: Acute myeloid leukaemia
     Dosage: UNK
     Route: 065
     Dates: start: 20220515
  3. ACLARUBICIN [Suspect]
     Active Substance: ACLARUBICIN
     Indication: Acute myeloid leukaemia
     Dosage: UNK
     Route: 065
     Dates: start: 20220515
  4. CYTARABINE [Suspect]
     Active Substance: CYTARABINE
     Indication: Acute myeloid leukaemia
     Dosage: UNK
     Route: 065
     Dates: start: 20220515
  5. GRANULOCYTE COLONY-STIMULATING FACTOR NOS [Suspect]
     Active Substance: GRANULOCYTE COLONY-STIMULATING FACTOR NOS
     Indication: Acute myeloid leukaemia
     Dosage: UNK
     Route: 065
     Dates: start: 20220515

REACTIONS (2)
  - Myelosuppression [Unknown]
  - Infection [Recovering/Resolving]
